FAERS Safety Report 24889974 (Version 4)
Quarter: 2025Q1

REPORT INFORMATION
  Report Type: Spontaneous
  Country: US (occurrence: US)
  Receive Date: 20250127
  Receipt Date: 20250325
  Transmission Date: 20250409
  Serious: No
  Sender: PFIZER
  Company Number: US-PFIZER INC-202500015548

PATIENT
  Age: 63 Year
  Sex: Female
  Weight: 72.57 kg

DRUGS (1)
  1. GENOTROPIN [Suspect]
     Active Substance: SOMATROPIN
     Dosage: 0.05 MG, 1X/DAY
     Dates: start: 202403

REACTIONS (3)
  - Device mechanical issue [Unknown]
  - Drug dose omission by device [Unknown]
  - Product prescribing error [Unknown]
